FAERS Safety Report 12162136 (Version 1)
Quarter: 2016Q1

REPORT INFORMATION
  Report Type: Spontaneous
  Country: US (occurrence: None)
  Receive Date: 20160307
  Receipt Date: 20160307
  Transmission Date: 20160526
  Serious: No
  Sender: FDA-Public Use
  Company Number: None

PATIENT
  Age: 14 Year
  Sex: Female
  Weight: 58.97 kg

DRUGS (2)
  1. LEVETIRACETA [Concomitant]
  2. APTIOM [Suspect]
     Active Substance: ESLICARBAZEPINE ACETATE
     Indication: PRODUCT USED FOR UNKNOWN INDICATION
     Route: 048
     Dates: start: 20160203, end: 20160302

REACTIONS (13)
  - Panic attack [None]
  - Asthenia [None]
  - Myalgia [None]
  - Sleep disorder [None]
  - Abnormal behaviour [None]
  - Restlessness [None]
  - Blood glucose decreased [None]
  - Fatigue [None]
  - Anxiety [None]
  - Decreased appetite [None]
  - Irritability [None]
  - Agitation [None]
  - Dizziness [None]

NARRATIVE: CASE EVENT DATE: 20160304
